FAERS Safety Report 25595596 (Version 1)
Quarter: 2025Q3

REPORT INFORMATION
  Report Type: Spontaneous
  Country: JP (occurrence: JP)
  Receive Date: 20250723
  Receipt Date: 20250723
  Transmission Date: 20251021
  Serious: Yes (Other)
  Sender: TAKEDA
  Company Number: JP-TAKEDA-2025TJP006969

PATIENT

DRUGS (1)
  1. CUVITRU [Suspect]
     Active Substance: HUMAN IMMUNOGLOBULIN G
     Indication: Secondary immunodeficiency
     Dosage: 4 GRAM, Q4WEEKS
     Dates: start: 20250501

REACTIONS (4)
  - Adult T-cell lymphoma/leukaemia [Unknown]
  - Pneumonia [Unknown]
  - Eosinophil count increased [Unknown]
  - Pruritus [Unknown]

NARRATIVE: CASE EVENT DATE: 20250710
